FAERS Safety Report 4535380-X (Version None)
Quarter: 2004Q4

REPORT INFORMATION
  Report Type: 
  Country: None (occurrence: None)
  Receive Date: 20041222
  Receipt Date: 20041215
  Transmission Date: 20050328
  Serious: Yes (Other)
  Sender: FDA-Public Use
  Company Number: US-GLAXOSMITHKLINE-A0537342A

PATIENT
  Age: 48 Year
  Sex: Female
  Weight: 59.1 kg

DRUGS (2)
  1. TUMS ULTRA MINT [Suspect]
     Indication: DYSPEPSIA
     Route: 048
     Dates: start: 20030101
  2. TUMS LASTING EFFECTS MINT [Suspect]
     Indication: DYSPEPSIA
     Route: 048

REACTIONS (13)
  - ABDOMINAL PAIN [None]
  - ABDOMINAL PAIN UPPER [None]
  - DEPENDENCE [None]
  - DIARRHOEA [None]
  - DRUG WITHDRAWAL SYNDROME [None]
  - HAEMORRHOIDAL HAEMORRHAGE [None]
  - HEADACHE [None]
  - IRRITABILITY [None]
  - NAUSEA [None]
  - PHARMACEUTICAL PRODUCT COMPLAINT [None]
  - RETCHING [None]
  - SCREAMING [None]
  - VOMITING [None]
